FAERS Safety Report 9632185 (Version 1)
Quarter: 2013Q4

REPORT INFORMATION
  Report Type: Spontaneous
  Country: US (occurrence: None)
  Receive Date: 20131016
  Receipt Date: 20131016
  Transmission Date: 20140711
  Serious: Yes (Other)
  Sender: FDA-Public Use
  Company Number: 2013AP008705

PATIENT
  Age: 70 Year
  Sex: Male

DRUGS (9)
  1. ALENDRONATE (ALENDRONATE SODIUM) [Suspect]
  2. RISEDRONATE SODIUM HYDRATE [Suspect]
     Dates: start: 20130804, end: 20130804
  3. CALCIUM CARBONATE (CALCIUM CARBONATE) [Concomitant]
  4. CALCIUM CARBONATE (CALCIUM CARBONATE) [Concomitant]
  5. BENDROFLUTMETHIAZIDE (BENDROFLUMETHIAZIDE) [Concomitant]
  6. GLUCOSAMINE SULPHATE (GLUCOSAMINE SULFATE) [Concomitant]
  7. PARACETAMOL (PARACETAMOL) [Concomitant]
  8. PREDNISOLONE (PREDNISOLONE) [Concomitant]
  9. PREDNISOLONE (PREDNISOLONE) [Concomitant]

REACTIONS (7)
  - Conjunctivitis [None]
  - Eye disorder [None]
  - Melanocytic naevus [None]
  - Oral pain [None]
  - Oral mucosal exfoliation [None]
  - Scab [None]
  - Erythema [None]
